FAERS Safety Report 17157517 (Version 2)
Quarter: 2020Q1

REPORT INFORMATION
  Report Type: Spontaneous
  Country: BR (occurrence: BR)
  Receive Date: 20191216
  Receipt Date: 20200227
  Transmission Date: 20200409
  Serious: Yes (Other)
  Sender: FDA-Public Use
  Company Number: BR-AMGEN-BRASP2019208589

PATIENT
  Age: 51 Year
  Sex: Female

DRUGS (1)
  1. ENBREL [Suspect]
     Active Substance: ETANERCEPT
     Indication: PRODUCT USED FOR UNKNOWN INDICATION
     Dosage: UNK
     Route: 065
     Dates: start: 201011, end: 20140401

REACTIONS (10)
  - Rheumatoid arthritis [Unknown]
  - Nervous system disorder [Unknown]
  - Hyperhidrosis [Unknown]
  - Decreased appetite [Unknown]
  - Visual impairment [Unknown]
  - Optic ischaemic neuropathy [Unknown]
  - Blindness [Unknown]
  - Somnolence [Unknown]
  - Pain [Unknown]
  - Gait inability [Unknown]

NARRATIVE: CASE EVENT DATE: 2019
